FAERS Safety Report 17213558 (Version 10)
Quarter: 2020Q2

REPORT INFORMATION
  Report Type: Spontaneous
  Country: US (occurrence: US)
  Receive Date: 20191230
  Receipt Date: 20200630
  Transmission Date: 20200713
  Serious: Yes (Other)
  Sender: FDA-Public Use
  Company Number: US-PFIZER INC-2019555888

PATIENT
  Age: 48 Year
  Sex: Male
  Weight: 89 kg

DRUGS (3)
  1. PREGABALIN. [Suspect]
     Active Substance: PREGABALIN
     Indication: NEUROPATHY PERIPHERAL
  2. PREGABALIN. [Suspect]
     Active Substance: PREGABALIN
     Indication: NEURALGIA
     Dosage: 200 MG, 3X/DAY
     Route: 048
     Dates: start: 201910, end: 2019
  3. PREGABALIN. [Suspect]
     Active Substance: PREGABALIN
     Indication: NERVE INJURY
     Dosage: 100 MG
     Dates: start: 2020

REACTIONS (21)
  - Staphylococcal infection [Unknown]
  - Ear swelling [Recovered/Resolved]
  - Urticaria [Unknown]
  - Joint swelling [Recovered/Resolved]
  - Weight decreased [Recovering/Resolving]
  - Vision blurred [Unknown]
  - Anxiety [Unknown]
  - Peripheral swelling [Recovered/Resolved]
  - Acute stress disorder [Unknown]
  - Influenza [Unknown]
  - Lymphadenopathy [Unknown]
  - Pain [Not Recovered/Not Resolved]
  - Drug ineffective [Unknown]
  - Rash [Recovered/Resolved]
  - Arthralgia [Recovered/Resolved]
  - Blister [Unknown]
  - Mental disorder [Unknown]
  - Acne [Recovering/Resolving]
  - Swelling face [Recovered/Resolved]
  - Malaise [Unknown]
  - Swelling [Recovered/Resolved]

NARRATIVE: CASE EVENT DATE: 2019
